FAERS Safety Report 4657271-6 (Version None)
Quarter: 2005Q2

REPORT INFORMATION
  Report Type: 
  Country: None (occurrence: None)
  Receive Date: 20050506
  Receipt Date: 20050406
  Transmission Date: 20051028
  Serious: Yes (Death)
  Sender: FDA-Public Use
  Company Number: 2004225435US

PATIENT
  Age: 65 Year
  Sex: Female
  Weight: 68.0396 kg

DRUGS (3)
  1. PROVERA [Suspect]
     Indication: MENOPAUSAL SYMPTOMS
     Dates: start: 19850101, end: 20010101
  2. CONJUGATED ESTROGENS [Suspect]
     Indication: MENOPAUSAL SYMPTOMS
     Dates: start: 19850101, end: 20010101
  3. ANOVLAR (ETHINYLESTRADIOL, NORETHISTERONE ACETATE) [Suspect]
     Indication: MENOPAUSAL SYMPTOMS
     Dates: start: 19850101, end: 20010101

REACTIONS (1)
  - BREAST CANCER FEMALE [None]
